FAERS Safety Report 7216644-8 (Version None)
Quarter: 2011Q1

REPORT INFORMATION
  Report Type: 
  Country: None (occurrence: None)
  Receive Date: 20110110
  Receipt Date: 20101229
  Transmission Date: 20110831
  Serious: No
  Sender: FDA-Public Use
  Company Number: US-BIOGENIDEC-2010BI044464

PATIENT
  Age: 35 Year
  Sex: Female

DRUGS (1)
  1. TYSABRI [Suspect]
     Indication: MULTIPLE SCLEROSIS
     Route: 042
     Dates: start: 20101201

REACTIONS (8)
  - DIARRHOEA [None]
  - ABASIA [None]
  - SINUSITIS [None]
  - TONSILLAR HYPERTROPHY [None]
  - NASAL CONGESTION [None]
  - RHINORRHOEA [None]
  - PYREXIA [None]
  - UPPER RESPIRATORY TRACT INFECTION [None]
